FAERS Safety Report 8368697-1 (Version None)
Quarter: 2012Q2

REPORT INFORMATION
  Report Type: 
  Country: None (occurrence: None)
  Receive Date: 20120518
  Receipt Date: 20120510
  Transmission Date: 20120825
  Serious: No
  Sender: FDA-Public Use
  Company Number: US-BIOGENIDEC-2012BI016741

PATIENT
  Age: 50 Year
  Sex: Female

DRUGS (1)
  1. TYSABRI [Suspect]
     Indication: MULTIPLE SCLEROSIS
     Route: 042
     Dates: start: 20111028

REACTIONS (5)
  - MULTIPLE SCLEROSIS [None]
  - DYSSTASIA [None]
  - BACK PAIN [None]
  - ARTHRALGIA [None]
  - MUSCULOSKELETAL STIFFNESS [None]
